FAERS Safety Report 5129343-3 (Version None)
Quarter: 2006Q4

REPORT INFORMATION
  Report Type: 
  Country: None (occurrence: None)
  Receive Date: 20061012
  Receipt Date: 20061001
  Transmission Date: 20070319
  Serious: Yes (Other)
  Sender: FDA-Public Use
  Company Number: CHNY2006JP02290

PATIENT
  Age: 27 Year
  Sex: Female
  Weight: 46 kg

DRUGS (1)
  1. NICOTINELL TTS (NCH) (NICOTINE)TRANS-THERAPEUTIC SYSTEM [Suspect]
     Indication: SMOKING CESSATION THERAPY
     Dosage: 21 MG, QD; TRANSDERMAL
     Route: 062
     Dates: start: 20060615, end: 20060711

REACTIONS (3)
  - APPLICATION SITE ERYTHEMA [None]
  - APPLICATION SITE EXFOLIATION [None]
  - APPLICATION SITE VESICLES [None]
